FAERS Safety Report 4643151-9 (Version None)
Quarter: 2005Q2

REPORT INFORMATION
  Report Type: 
  Country: None (occurrence: None)
  Receive Date: 20050421
  Receipt Date: 20050415
  Transmission Date: 20051028
  Serious: Yes (Hospitalization)
  Sender: FDA-Public Use
  Company Number: 200510401BVD

PATIENT
  Age: 48 Year
  Sex: Female
  Weight: 102 kg

DRUGS (5)
  1. ASPIRIN [Suspect]
     Indication: NASOPHARYNGITIS
     Dosage: BID, ORAL
     Route: 048
     Dates: start: 20041010
  2. TETESEPT [Suspect]
     Indication: NASOPHARYNGITIS
     Dosage: BID, ORAL
     Route: 048
     Dates: start: 20041008, end: 20041012
  3. VITAMIN E [Concomitant]
  4. IRON [Concomitant]
  5. ANTIBIOTICS NOS [Concomitant]

REACTIONS (2)
  - IDIOPATHIC THROMBOCYTOPENIC PURPURA [None]
  - INFECTION [None]
